FAERS Safety Report 7781753-1 (Version None)
Quarter: 2011Q3

REPORT INFORMATION
  Report Type: 
  Country: None (occurrence: None)
  Receive Date: 20110927
  Receipt Date: 20110405
  Transmission Date: 20111222
  Serious: Yes (Hospitalization)
  Sender: FDA-Public Use
  Company Number: US-GLAXOSMITHKLINE-A0922164A

PATIENT
  Age: 50 Year
  Sex: Female

DRUGS (2)
  1. AVANDAMET [Suspect]
     Indication: DIABETES MELLITUS
     Route: 048
     Dates: start: 20070101, end: 20100101
  2. AVANDIA [Suspect]
     Indication: DIABETES MELLITUS
     Dosage: 2MG TWICE PER DAY
     Route: 048
     Dates: start: 20020830, end: 20050101

REACTIONS (7)
  - CARDIAC DISORDER [None]
  - PAIN IN EXTREMITY [None]
  - HYPOAESTHESIA [None]
  - DYSPNOEA [None]
  - CHEST PAIN [None]
  - OEDEMA PERIPHERAL [None]
  - JOINT SWELLING [None]
